FAERS Safety Report 9146348 (Version 1)
Quarter: 2013Q1

REPORT INFORMATION
  Report Type: Spontaneous
  Country: US (occurrence: None)
  Receive Date: 20130227
  Receipt Date: 20130227
  Transmission Date: 20140127
  Serious: No
  Sender: FDA-Public Use
  Company Number: None

PATIENT
  Age: 66 Year
  Sex: Male
  Weight: 73.5 kg

DRUGS (1)
  1. DOCETAXEL [Suspect]
     Dosage: MG
     Dates: start: 20130222, end: 20130222

REACTIONS (4)
  - Headache [None]
  - Hypertension [None]
  - Chest pain [None]
  - Neck pain [None]
